FAERS Safety Report 5396908-3 (Version None)
Quarter: 2007Q3

REPORT INFORMATION
  Report Type: 
  Country: None (occurrence: None)
  Receive Date: 20070725
  Receipt Date: 20070711
  Transmission Date: 20080115
  Serious: Yes (Disabling)
  Sender: FDA-Public Use
  Company Number: GB-BAUSCH-2007BL002320

PATIENT
  Age: 69 Year
  Sex: Male
  Weight: 50 kg

DRUGS (14)
  1. GENTAMICIN SULFATE [Suspect]
     Indication: PSEUDOMONAS INFECTION
     Route: 042
     Dates: start: 20070614, end: 20070616
  2. GENTAMICIN SULFATE [Suspect]
     Route: 042
     Dates: start: 20070617, end: 20070618
  3. ALENDRONATE SODIUM [Concomitant]
  4. CARBOCISTEINE [Concomitant]
  5. CEFTAZIDIME [Concomitant]
  6. ENOXAPARIN SODIUM [Concomitant]
  7. FOLIC ACID [Concomitant]
  8. LACTULOSE [Concomitant]
  9. OMEPRAZOLE [Concomitant]
  10. ACETAMINOPHEN [Concomitant]
  11. PREDNISOLONE [Concomitant]
  12. SENNA [Concomitant]
  13. SERETIDE ^ALLEN + HANBURYS LTD^ [Concomitant]
  14. TIOTROPIUM [Concomitant]
     Route: 049

REACTIONS (1)
  - OTOTOXICITY [None]
